FAERS Safety Report 8615036 (Version 5)
Quarter: 2012Q4

REPORT INFORMATION
  Report Type: 
  Country: US (occurrence: US)
  Receive Date: 20120614
  Receipt Date: 20121207
  Transmission Date: 20130627
  Serious: Yes (Hospitalization, Disabling, Other)
  Sender: FDA-Public Use
  Company Number: US-009507513-1206USA00880

PATIENT

DRUGS (5)
  1. FOSAMAX [Suspect]
     Indication: OSTEOPENIA
     Dosage: 70 mg, qw
     Route: 048
     Dates: start: 20040113, end: 20070904
  2. FOSAMAX [Suspect]
     Indication: OSTEOPOROSIS
  3. ALENDRONATE SODIUM [Suspect]
     Indication: OSTEOPOROSIS
     Dosage: 70 mg, qw
     Route: 048
     Dates: start: 20080405, end: 20100715
  4. ALENDRONATE SODIUM [Suspect]
     Indication: OSTEOPENIA
  5. PREMPRO [Concomitant]
     Indication: MENOPAUSE
     Dosage: 0.3/1.5 mg twice weekly M/F
     Dates: start: 2000

REACTIONS (25)
  - Femoral neck fracture [Unknown]
  - Open reduction of fracture [Unknown]
  - Periprosthetic fracture [Unknown]
  - Hip arthroplasty [Unknown]
  - Osteonecrosis [Unknown]
  - Hormone therapy [Unknown]
  - Osteitis condensans [Unknown]
  - Osteoarthritis [Unknown]
  - Hip deformity [Unknown]
  - Skeletal injury [Unknown]
  - Hypercholesterolaemia [Not Recovered/Not Resolved]
  - Electrocardiogram abnormal [Recovered/Resolved]
  - Vertigo positional [Unknown]
  - Allergic respiratory symptom [Unknown]
  - Upper respiratory tract infection [Unknown]
  - Weight decreased [Unknown]
  - Blood homocysteine increased [Unknown]
  - Bursitis [Unknown]
  - Tendonitis [Not Recovered/Not Resolved]
  - Impaired healing [Unknown]
  - Viral upper respiratory tract infection [Unknown]
  - Rotator cuff syndrome [Unknown]
  - Rotator cuff syndrome [Unknown]
  - Blood pressure increased [Unknown]
  - Epistaxis [Unknown]
